FAERS Safety Report 5899711-0 (Version None)
Quarter: 2008Q3

REPORT INFORMATION
  Report Type: 
  Country: None (occurrence: None)
  Receive Date: 20080919
  Receipt Date: 20080701
  Transmission Date: 20090109
  Serious: No
  Sender: FDA-Public Use
  Company Number: US-WYE-H04320608

PATIENT
  Age: 61 Year
  Sex: Female

DRUGS (15)
  1. PRISTIQ [Suspect]
     Indication: DEPRESSION
     Dosage: 50 MG 1X PER 1 DAY, ORAL
     Route: 048
     Dates: start: 20080522, end: 20080526
  2. LANTUS [Concomitant]
  3. VYTORIN [Concomitant]
  4. RAMIPRIL [Concomitant]
  5. SIMVASTATIN [Concomitant]
  6. CILOSTAZOL [Concomitant]
  7. NEXIUM [Concomitant]
  8. FUROSEMIDE [Concomitant]
  9. HYDROCHLOROTHIAZIDE [Concomitant]
  10. METOCLOPRAMIDE [Concomitant]
  11. INDOMETHACIN [Concomitant]
  12. TRICOR [Concomitant]
  13. ALLOPURINOL [Concomitant]
  14. HYDROXYZINE [Concomitant]
  15. ACETYLSALICYLIC ACID SRT [Concomitant]

REACTIONS (6)
  - ANXIETY [None]
  - CRYING [None]
  - DISORIENTATION [None]
  - NERVOUSNESS [None]
  - PANIC ATTACK [None]
  - TREMOR [None]
